FAERS Safety Report 24764597 (Version 2)
Quarter: 2024Q4

REPORT INFORMATION
  Report Type: Spontaneous
  Country: CA (occurrence: CA)
  Receive Date: 20241223
  Receipt Date: 20241226
  Transmission Date: 20250114
  Serious: Yes (Hospitalization)
  Sender: CELLTRION
  Company Number: CA-PFIZER INC-202400291292

PATIENT

DRUGS (7)
  1. INFLECTRA [Suspect]
     Active Substance: INFLIXIMAB-DYYB
     Indication: Colitis ulcerative
     Dosage: 327.?5 MG - 5 MG/KG - WEEK 0 DOSE
     Route: 042
     Dates: start: 20241021, end: 20241021
  2. INFLECTRA [Suspect]
     Active Substance: INFLIXIMAB-DYYB
     Dosage: 327 MG, 5 MG/KG-TOP UP DOSE FOR WEEK 0 PREVIOUSLY RECEIVED ON 21OCT2024 FOR A TOTAL OF 10 MG/KG
     Route: 042
     Dates: start: 20241023, end: 20241023
  3. INFLECTRA [Suspect]
     Active Substance: INFLIXIMAB-DYYB
     Dosage: 700 MG, WEEK 2, W6 THAN EVERY 8 WEEKS
     Route: 042
     Dates: start: 20241105
  4. INFLECTRA [Suspect]
     Active Substance: INFLIXIMAB-DYYB
     Dosage: 700 MG, WEEK 6 (WEEK 2, WEEK 6 THEN Q8WEEKS )
     Route: 042
     Dates: start: 20241203
  5. PENTASA [Concomitant]
     Active Substance: MESALAMINE
     Dosage: UNK
  6. PREDNISONE [Concomitant]
     Active Substance: PREDNISONE
     Dosage: UNK
  7. GLYCOPYRRONIUM\INDACATEROL [Concomitant]
     Active Substance: GLYCOPYRRONIUM\INDACATEROL
     Dosage: UNK

REACTIONS (3)
  - Condition aggravated [Unknown]
  - Cytomegalovirus infection [Unknown]
  - Treatment failure [Unknown]

NARRATIVE: CASE EVENT DATE: 20240101
